FAERS Safety Report 21661217 (Version 1)
Quarter: 2022Q4

REPORT INFORMATION
  Report Type: Spontaneous
  Country: US (occurrence: US)
  Receive Date: 20221130
  Receipt Date: 20221130
  Transmission Date: 20230112
  Serious: No
  Sender: FDA-Public Use
  Company Number: US-JNJFOC-20221156343

PATIENT
  Sex: Male

DRUGS (3)
  1. INVEGA HAFYERA [Suspect]
     Active Substance: PALIPERIDONE PALMITATE
     Indication: Schizophrenia
     Route: 030
     Dates: start: 20220816
  2. INVEGA HAFYERA [Suspect]
     Active Substance: PALIPERIDONE PALMITATE
  3. INVEGA [Concomitant]
     Active Substance: PALIPERIDONE

REACTIONS (3)
  - Drug ineffective [Unknown]
  - Injection site discharge [Unknown]
  - Underdose [Unknown]
